FAERS Safety Report 9611918 (Version 2)
Quarter: 2013Q4

REPORT INFORMATION
  Report Type: Spontaneous
  Country: US (occurrence: US)
  Receive Date: 20131010
  Receipt Date: 20131108
  Transmission Date: 20140711
  Serious: No
  Sender: FDA-Public Use
  Company Number: US-ASTELLAS-2013US010401

PATIENT
  Sex: Male

DRUGS (2)
  1. PROGRAF [Suspect]
     Indication: RENAL TRANSPLANT
     Dosage: 6 MG, UID/QD
     Route: 048
     Dates: start: 20000301
  2. PROGRAF [Suspect]
     Indication: LIVER TRANSPLANT

REACTIONS (1)
  - No adverse event [Unknown]
